FAERS Safety Report 7281480-3 (Version None)
Quarter: 2011Q1

REPORT INFORMATION
  Report Type: 
  Country: None (occurrence: None)
  Receive Date: 20110208
  Receipt Date: 20110127
  Transmission Date: 20110831
  Serious: Yes (Other)
  Sender: FDA-Public Use
  Company Number: PHHY2011AT06749

PATIENT
  Sex: Female

DRUGS (1)
  1. NILOTINIB [Suspect]

REACTIONS (5)
  - ANGIOPATHY [None]
  - HEADACHE [None]
  - VERTIGO [None]
  - NEUROLOGICAL SYMPTOM [None]
  - CEREBRAL DISORDER [None]
